FAERS Safety Report 8610823-0 (Version None)
Quarter: 2012Q3

REPORT INFORMATION
  Report Type: 
  Country: None (occurrence: None)
  Receive Date: 20120822
  Receipt Date: 20120814
  Transmission Date: 20120928
  Serious: Yes (Hospitalization)
  Sender: FDA-Public Use
  Company Number: CA-JNJFOC-20120610116

PATIENT
  Sex: Female
  Weight: 59 kg

DRUGS (9)
  1. ASCORBIC ACID [Concomitant]
     Route: 065
  2. PANTOPRAZOLE SODIUM [Concomitant]
     Route: 065
  3. REMICADE [Suspect]
     Indication: CROHN'S DISEASE
     Route: 042
     Dates: start: 20120814
  4. GRAVOL TAB [Concomitant]
     Route: 065
  5. VITAMIN D [Concomitant]
     Route: 065
  6. REMICADE [Suspect]
     Route: 042
     Dates: start: 20111013
  7. REMICADE [Suspect]
     Route: 042
     Dates: start: 20120601
  8. LOMOTIL [Concomitant]
     Route: 065
  9. HYDROMORPH [Concomitant]
     Route: 065

REACTIONS (2)
  - VAGINAL FISTULA [None]
  - CROHN'S DISEASE [None]
